FAERS Safety Report 9976048 (Version 2)
Quarter: 2014Q1

REPORT INFORMATION
  Report Type: Spontaneous
  Country: US (occurrence: US)
  Receive Date: 20140306
  Receipt Date: 20140325
  Transmission Date: 20141002
  Serious: Yes (Other)
  Sender: FDA-Public Use
  Company Number: US-LUNDBECK-DKLU1098087

PATIENT
  Age: 1 Year
  Sex: Female
  Weight: 15 kg

DRUGS (3)
  1. SABRIL (TABLET) [Suspect]
     Indication: INFANTILE SPASMS
     Route: 048
     Dates: start: 201301
  2. DEPAKOTE SPRINKLES [Concomitant]
     Indication: CONVULSION
     Route: 048
     Dates: start: 201304
  3. FELBAMATE [Concomitant]
     Indication: CONVULSION
     Route: 048
     Dates: start: 201304

REACTIONS (1)
  - Hemianopia homonymous [Recovering/Resolving]
